FAERS Safety Report 10396621 (Version 1)
Quarter: 2014Q1

REPORT INFORMATION
  Report Type: Spontaneous
  Country: US (occurrence: None)
  Receive Date: 20130815
  Receipt Date: 20130815
  Transmission Date: 20141002
  Serious: Yes (Other)
  Sender: FDA-Public Use
  Company Number: ADR-2012-01644

PATIENT
  Sex: Female

DRUGS (1)
  1. BACLOFEN INTRATHECAL (BACLOFEN INJECTION) [Suspect]

REACTIONS (5)
  - Urinary tract disorder [None]
  - Renal impairment [None]
  - Neuralgia [None]
  - Kidney infection [None]
  - Bacterial infection [None]
